FAERS Safety Report 17970020 (Version 1)
Quarter: 2020Q3

REPORT INFORMATION
  Report Type: Spontaneous
  Country: JP (occurrence: JP)
  Receive Date: 20200701
  Receipt Date: 20200701
  Transmission Date: 20201103
  Serious: Yes (Hospitalization)
  Sender: FDA-Public Use
  Company Number: JP-DSJP-DSJ-2020-118255

PATIENT

DRUGS (3)
  1. AROTINOLOL HYDROCHLORIDE [Concomitant]
     Active Substance: AROTINOLOL HYDROCHLORIDE
     Dosage: 10 MG, TID
     Route: 048
  2. OLMETEC OD [Suspect]
     Active Substance: OLMESARTAN MEDOXOMIL
     Indication: HYPERTENSION
     Dosage: 20 MG, QD
     Route: 048
  3. RIVOTRIL [Concomitant]
     Active Substance: CLONAZEPAM
     Dosage: 0.3MG(AT MORNING), 0.5MG(BEFORE BEDTIME)
     Route: 048

REACTIONS (9)
  - Dizziness [Recovering/Resolving]
  - Feeling cold [Recovering/Resolving]
  - Hypophagia [Recovering/Resolving]
  - Abulia [Recovering/Resolving]
  - Cardiac failure [Recovering/Resolving]
  - Gait inability [Recovering/Resolving]
  - Nasopharyngitis [Unknown]
  - Oedema [Recovering/Resolving]
  - Gastroenteritis [Unknown]
